FAERS Safety Report 9778496 (Version 1)
Quarter: 2013Q4

REPORT INFORMATION
  Report Type: Report from Study
  Country: CA (occurrence: CA)
  Receive Date: 20131223
  Receipt Date: 20131223
  Transmission Date: 20140711
  Serious: Yes (Life-Threatening, Hospitalization)
  Sender: FDA-Public Use
  Company Number: CA-B.I. PHARMACEUTICALS,INC./RIDGEFIELD-2013-BI-43371BI

PATIENT
  Age: 58 Year
  Sex: Male
  Weight: 102 kg

DRUGS (4)
  1. DABIGATRAN [Suspect]
     Indication: ATRIAL FIBRILLATION
     Dosage: 300 MG
     Route: 048
     Dates: start: 20121208, end: 20130924
  2. DILTIAZEM [Concomitant]
     Indication: HEART RATE
     Dosage: 120 MG
     Route: 048
     Dates: start: 20130107
  3. DILTIAZEM [Concomitant]
     Indication: HYPERTENSION
  4. LOPRESSOR [Concomitant]
     Indication: HYPERTENSION
     Dosage: 100 MG
     Route: 048
     Dates: start: 20000615, end: 20130107

REACTIONS (3)
  - Cardiac arrest [Recovered/Resolved]
  - Ventricular arrhythmia [Recovered/Resolved]
  - Myocardial infarction [Recovered/Resolved]
